FAERS Safety Report 22180789 (Version 4)
Quarter: 2024Q1

REPORT INFORMATION
  Report Type: Report from Study
  Country: GB (occurrence: GB)
  Receive Date: 20230406
  Receipt Date: 20240214
  Transmission Date: 20240410
  Serious: Yes (Other)
  Sender: FDA-Public Use
  Company Number: GB-GLAXOSMITHKLINE-GB2021EME154572

PATIENT

DRUGS (4)
  1. NIRAPARIB [Suspect]
     Active Substance: NIRAPARIB
     Indication: Neoplasm malignant
     Dosage: UNK
  2. NIRAPARIB [Suspect]
     Active Substance: NIRAPARIB
     Dosage: 100 MG
  3. NIRAPARIB [Suspect]
     Active Substance: NIRAPARIB
     Dosage: UNK
  4. NIRAPARIB [Suspect]
     Active Substance: NIRAPARIB
     Dosage: 300 MG

REACTIONS (31)
  - Malignant neoplasm progression [Unknown]
  - Contusion [Unknown]
  - Insomnia [Unknown]
  - Hyperhidrosis [Unknown]
  - Palpitations [Unknown]
  - Back pain [Unknown]
  - Stress [Unknown]
  - Bladder pain [Unknown]
  - Fatigue [Unknown]
  - Decreased appetite [Unknown]
  - Nasopharyngitis [Unknown]
  - Vision blurred [Unknown]
  - Muscle spasms [Unknown]
  - Nausea [Unknown]
  - Vomiting [Unknown]
  - Headache [Unknown]
  - Mass [Unknown]
  - Ingrown hair [Unknown]
  - Poor quality sleep [Unknown]
  - Blood pressure increased [Not Recovered/Not Resolved]
  - Vaginal haemorrhage [Not Recovered/Not Resolved]
  - Oral pain [Not Recovered/Not Resolved]
  - Peripheral coldness [Unknown]
  - Weight decreased [Not Recovered/Not Resolved]
  - Chromaturia [Unknown]
  - Candida infection [Unknown]
  - Vaginal discharge [Unknown]
  - Vulvovaginal candidiasis [Not Recovered/Not Resolved]
  - Vulvovaginal pain [Unknown]
  - Condition aggravated [Not Recovered/Not Resolved]
  - Panic attack [Unknown]

NARRATIVE: CASE EVENT DATE: 20230301
